FAERS Safety Report 10878832 (Version 3)
Quarter: 2015Q3

REPORT INFORMATION
  Report Type: Report from Study
  Country: DE (occurrence: DE)
  Receive Date: 20150302
  Receipt Date: 20150727
  Transmission Date: 20151125
  Serious: Yes (Other)
  Sender: FDA-Public Use
  Company Number: DE-INCYTE CORPORATION-2015IN000689

PATIENT
  Sex: Male
  Weight: 98 kg

DRUGS (23)
  1. AMLODIPINE [Concomitant]
     Active Substance: AMLODIPINE BESYLATE
     Indication: HYPERTENSION
     Dosage: UNKNOWN
     Route: 065
     Dates: start: 20130513
  2. TORASEMIDE [Concomitant]
     Active Substance: TORSEMIDE
     Indication: OEDEMA DUE TO CARDIAC DISEASE
     Dosage: UNKNOWN
     Route: 065
     Dates: start: 20130513
  3. FOLSAN [Concomitant]
     Active Substance: FOLIC ACID
     Indication: FOLATE DEFICIENCY
     Dosage: UNKNOWN
     Route: 065
     Dates: start: 20140618, end: 20141210
  4. INCB018424 [Suspect]
     Active Substance: RUXOLITINIB
     Dosage: 1 DF, QD (5 MG)
     Route: 048
     Dates: start: 20140716, end: 20141118
  5. INCB018424 [Suspect]
     Active Substance: RUXOLITINIB
     Dosage: 2 DF, QD (5 MG)
     Route: 048
     Dates: start: 20141119, end: 20150319
  6. INCB018424 [Suspect]
     Active Substance: RUXOLITINIB
     Dosage: 1 DF, QD (5 MG)
     Route: 048
     Dates: start: 20140221, end: 20140304
  7. PANTOZOL [Concomitant]
     Active Substance: PANTOPRAZOLE SODIUM
     Indication: GASTRITIS PROPHYLAXIS
     Dosage: UNKNOWN
     Route: 065
     Dates: start: 20140122
  8. INCB018424 [Suspect]
     Active Substance: RUXOLITINIB
     Indication: MYELOFIBROSIS
     Dosage: 2 DF, QD (20 MG)
     Route: 048
     Dates: start: 20131127
  9. INCB018424 [Suspect]
     Active Substance: RUXOLITINIB
     Dosage: 2 DF, QD (5 MG)
     Route: 048
     Dates: start: 20140513, end: 20140527
  10. RAMIPRIL. [Concomitant]
     Active Substance: RAMIPRIL
     Indication: HYPERTENSION
     Dosage: UNKNOWN
     Route: 065
     Dates: start: 20110302
  11. INCB018424 [Suspect]
     Active Substance: RUXOLITINIB
     Dosage: 2 DF, QD (5 MG)
     Route: 048
     Dates: start: 20140305, end: 20140311
  12. INCB018424 [Suspect]
     Active Substance: RUXOLITINIB
     Dosage: 1 DF, QD (5MG)
     Route: 048
     Dates: start: 20150422, end: 20150427
  13. INCB018424 [Suspect]
     Active Substance: RUXOLITINIB
     Dosage: 2 DF, QD (5 MG)
     Route: 048
     Dates: start: 20150428
  14. TORASEMIDE [Concomitant]
     Active Substance: TORSEMIDE
     Indication: CARDIAC FAILURE
  15. INCB018424 [Suspect]
     Active Substance: RUXOLITINIB
     Dosage: 4 DF, QD (5 MG)
     Route: 048
     Dates: start: 20131214, end: 20131219
  16. INCB018424 [Suspect]
     Active Substance: RUXOLITINIB
     Dosage: 1 DF, QD (5 MG)
     Route: 048
     Dates: start: 20140312, end: 20140318
  17. CARVEDILOL. [Concomitant]
     Active Substance: CARVEDILOL
     Indication: HYPERTENSION
     Dosage: UNKNOWN
     Route: 065
     Dates: start: 20130513
  18. MELOXICAM. [Concomitant]
     Active Substance: MELOXICAM
     Indication: OSTEOARTHRITIS
     Dosage: UNKNOWN
     Route: 065
     Dates: start: 201201
  19. INCB018424 [Suspect]
     Active Substance: RUXOLITINIB
     Dosage: 2 DF, QD (5 MG)
     Route: 048
     Dates: start: 20140105, end: 20140122
  20. INCB018424 [Suspect]
     Active Substance: RUXOLITINIB
     Dosage: 1 DF, QD (5 MG)
     Route: 048
     Dates: start: 20140327, end: 20140512
  21. ALLOPURINOL. [Concomitant]
     Active Substance: ALLOPURINOL
     Indication: HYPERURICAEMIA
     Dosage: UNKNOWN
     Route: 065
     Dates: start: 20130513
  22. INCB018424 [Suspect]
     Active Substance: RUXOLITINIB
     Dosage: 1 DF, QD (5 MG)
     Route: 048
     Dates: start: 20140528, end: 20140604
  23. AVALOX [Concomitant]
     Active Substance: MOXIFLOXACIN HYDROCHLORIDE
     Indication: COUGH
     Dosage: UNKNOWN
     Route: 065
     Dates: start: 20150107, end: 20150116

REACTIONS (1)
  - Serum ferritin increased [Not Recovered/Not Resolved]

NARRATIVE: CASE EVENT DATE: 20141119
